FAERS Safety Report 24757613 (Version 1)
Quarter: 2024Q4

REPORT INFORMATION
  Report Type: Other
  Country: GB (occurrence: GB)
  Receive Date: 20241220
  Receipt Date: 20241220
  Transmission Date: 20250115
  Serious: Yes (Hospitalization, Other)
  Sender: BIOCON
  Company Number: GB-MHRA-MIDB-d7dbe1a1-9ba7-4b83-a89a-01343b36aaf2

PATIENT

DRUGS (24)
  1. ADALIMUMAB [Suspect]
     Active Substance: ADALIMUMAB
     Indication: Product used for unknown indication
     Dosage: UNK
     Route: 065
  2. ZINC SULFATE MONOHYDRATE [Concomitant]
     Active Substance: ZINC SULFATE MONOHYDRATE
     Indication: Product used for unknown indication
     Dosage: 125 MILLIGRAM, Q3D  (SUGAR FREE)
     Route: 065
  3. ZINC SULFATE MONOHYDRATE [Concomitant]
     Active Substance: ZINC SULFATE MONOHYDRATE
     Dosage: 125 MILLIGRAM, Q8H
     Route: 065
     Dates: start: 20240208
  4. BUTYLSCOPOLAMINE BROMIDE [Concomitant]
     Active Substance: BUTYLSCOPOLAMINE BROMIDE
     Indication: Product used for unknown indication
     Dosage: 10 MILLIGRAM, Q3D (ONE TO BE TAKEN FOUR TIMES A DAY - REPORTS HAS TDS - DOES GIVEN VIA PEJ)
     Route: 065
  5. BUTYLSCOPOLAMINE BROMIDE [Concomitant]
     Active Substance: BUTYLSCOPOLAMINE BROMIDE
     Dosage: 10 MILLIGRAM, Q8H (ONE TO BE TAKEN FOUR TIMES A DAY - REPORTS HAS TDS - DOES GIVEN VIA PEJ)
     Route: 065
  6. FOLIC ACID [Concomitant]
     Active Substance: FOLIC ACID
     Indication: Product used for unknown indication
     Dosage: 2.5MG/5ML SUGAR FREE
     Route: 048
     Dates: start: 20240114
  7. FOLIC ACID [Concomitant]
     Active Substance: FOLIC ACID
     Dosage: 2.5MG/5ML SUGAR FREE
     Route: 048
     Dates: start: 20240124
  8. BIOXTRA [Concomitant]
     Indication: Dry mouth
     Dosage: 1 APPLICATION PRN -?DOESN^T USE (BIOXTRA DRY MOUTH ORAL GEL)
     Route: 048
     Dates: start: 20230203
  9. PREDNISOLONE [Concomitant]
     Active Substance: PREDNISOLONE
     Indication: Product used for unknown indication
     Dosage: INSERT ONE SUPPOSITORY INTO THE RECTUM AT TEATIME AS DIRECTED BY HOSPITAL - USES THIS AND BUDESONIDE
     Route: 054
     Dates: start: 20240219
  10. NEFOPAM [Concomitant]
     Active Substance: NEFOPAM
     Indication: Product used for unknown indication
     Dosage: 60 MILLIGRAM, Q3D
     Route: 065
     Dates: start: 20240125
  11. NEFOPAM [Concomitant]
     Active Substance: NEFOPAM
     Dosage: 60 MILLIGRAM, Q8H
     Route: 065
     Dates: start: 20240125
  12. MIRTAZAPINE [Concomitant]
     Active Substance: MIRTAZAPINE
     Indication: Product used for unknown indication
     Dosage: 45 MILLIGRAM, QD (AT NIGHT)
     Route: 065
     Dates: start: 20240219
  13. ACETAMINOPHEN [Concomitant]
     Active Substance: ACETAMINOPHEN
     Indication: Product used for unknown indication
     Dosage: 250MG/5ML ORAL SUSPENSION SUGAR FREE TWO TO FOUR 5ML SPOONFULS EVERY 4 TO 6 HOURS WHEN NECESSARY. NO
     Route: 048
     Dates: start: 20240219
  14. HYDROCORTISONE [Concomitant]
     Active Substance: HYDROCORTISONE
     Indication: Product used for unknown indication
     Dosage: 10MG TABLETS ONE AND A HALF TABLETS TO BE TAKEN TWICE A DAY TAKES 20MG OM, 10MG LUNCH 10MG TEATIME U
     Route: 065
     Dates: start: 20240208
  15. HYDROCORTISONE [Concomitant]
     Active Substance: HYDROCORTISONE
     Dosage: 20 MG, QD (MORNING)
     Route: 065
     Dates: start: 20240208
  16. HYDROCORTISONE [Concomitant]
     Active Substance: HYDROCORTISONE
     Dosage: 10 MG, QD (TEATIME)
     Route: 065
     Dates: start: 20240208
  17. HYDROCORTISONE [Concomitant]
     Active Substance: HYDROCORTISONE
     Dosage: 10 MG, QD (LUNCH)
     Route: 065
     Dates: start: 20240208
  18. LANSOPRAZOLE [Concomitant]
     Active Substance: LANSOPRAZOLE
     Indication: Product used for unknown indication
     Dosage: 30 MILLIGRAM, QOD
     Route: 065
     Dates: start: 20240208
  19. LANSOPRAZOLE [Concomitant]
     Active Substance: LANSOPRAZOLE
     Dosage: 30 MILLIGRAM, Q12H (VIA ENTERAL FEEDING TUBE)
     Route: 065
     Dates: start: 20240208
  20. LOPERAMIDE [Concomitant]
     Active Substance: LOPERAMIDE
     Indication: Diarrhoea
     Dosage: MAX 16MG IN 24 HOURS. -?DOESN^T USE
     Route: 065
     Dates: start: 20230921
  21. CHOLECALCIFEROL [Concomitant]
     Active Substance: CHOLECALCIFEROL
     Indication: Product used for unknown indication
     Dosage: 10,000UNITS/ML ORAL DROPS SUGAR FREE TAKE 2ML (20,000UNITS) ONCE EVERY 4 WEEKS IN PLACE OF THE CAPSU
     Route: 048
     Dates: start: 20240219
  22. CHOLECALCIFEROL [Concomitant]
     Active Substance: CHOLECALCIFEROL
     Dosage: 10,000UNITS/ML ORAL DROPS SUGAR FREETAKE 2ML (20,000UNITS) ONCE EVERY 4 WEEKS IN PLACE OF THE CAPSUL
     Route: 048
     Dates: start: 20240219
  23. BUDESONIDE [Concomitant]
     Active Substance: BUDESONIDE
     Indication: Product used for unknown indication
     Dosage: APPLICATION FOAM ENEMA ONE DOSE TO BE INSERTED EACH DAY - ON -} PT REFUSING WHILE IN HOSPITAL
     Route: 054
     Dates: start: 20240219
  24. FLUDROCORTISONE [Concomitant]
     Active Substance: FLUDROCORTISONE
     Indication: Product used for unknown indication
     Dosage: 50 MICROGRAM, QD (IN THE MORNING) (HALF 100UG IN THE MORNING)
     Route: 065
     Dates: start: 20240208

REACTIONS (1)
  - Cardiac failure congestive [Recovered/Resolved]
